FAERS Safety Report 14242214 (Version 1)
Quarter: 2017Q4

REPORT INFORMATION
  Report Type: Spontaneous
  Country: US (occurrence: US)
  Receive Date: 20171130
  Receipt Date: 20171130
  Transmission Date: 20180321
  Serious: Yes (Hospitalization, Disabling, Other)
  Sender: FDA-Public Use
  Company Number: None

PATIENT
  Age: 65 Year
  Sex: Female
  Weight: 92.6 kg

DRUGS (1)
  1. XOLAIR [Suspect]
     Active Substance: OMALIZUMAB
     Indication: ASTHMA
     Dates: start: 20171103

REACTIONS (6)
  - Pain [None]
  - Nausea [None]
  - Dyspnoea [None]
  - Electrocardiogram abnormal [None]
  - Chest discomfort [None]
  - Acute myocardial infarction [None]

NARRATIVE: CASE EVENT DATE: 20171103
